FAERS Safety Report 4343042-7 (Version None)
Quarter: 2004Q2

REPORT INFORMATION
  Report Type: 
  Country: None (occurrence: None)
  Receive Date: 20040421
  Receipt Date: 20040414
  Transmission Date: 20050107
  Serious: Yes (Hospitalization)
  Sender: FDA-Public Use
  Company Number: DE-ROCHE-364454

PATIENT
  Age: 35 Year
  Sex: Female
  Weight: 45 kg

DRUGS (4)
  1. PEG-INTERFERON ALFA 2A (RO 25-8310) [Suspect]
     Indication: HEPATITIS C
     Route: 058
     Dates: start: 20031031, end: 20040409
  2. RIBAVIRIN [Suspect]
     Indication: HEPATITIS C
     Route: 048
     Dates: start: 20031031, end: 20040409
  3. ASPIRIN [Concomitant]
     Indication: HEADACHE
     Route: 048
  4. UNKNOWN DRUG [Concomitant]
     Dosage: DRUG NAME REPORTED AS ADACOLUMN.
     Dates: start: 20031027, end: 20031031

REACTIONS (1)
  - SCHIZOPHRENIA [None]
